FAERS Safety Report 6497181-5 (Version None)
Quarter: 2009Q4

REPORT INFORMATION
  Report Type: 
  Country: None (occurrence: None)
  Receive Date: 20091215
  Receipt Date: 20090521
  Transmission Date: 20100525
  Serious: No
  Sender: FDA-Public Use
  Company Number: A0785599A

PATIENT
  Age: 61 Year
  Sex: Male

DRUGS (10)
  1. AVODART [Suspect]
     Indication: BENIGN PROSTATIC HYPERPLASIA
     Dosage: 1CAP PER DAY
     Route: 048
     Dates: start: 20080101
  2. UROXATRAL [Concomitant]
  3. LISINOPRIL [Concomitant]
  4. AMILORIDE HYDROCHLORIDE [Concomitant]
  5. UROCIT-K [Concomitant]
  6. M.V.I. [Concomitant]
  7. CALCIUM SUPPLEMENT [Concomitant]
  8. ACIPHEX [Concomitant]
  9. ASPIRIN [Concomitant]
  10. GLUCOSAMINE [Concomitant]

REACTIONS (2)
  - BREAST ENLARGEMENT [None]
  - SEMEN VOLUME DECREASED [None]
